FAERS Safety Report 24982848 (Version 2)
Quarter: 2025Q2

REPORT INFORMATION
  Report Type: Spontaneous
  Country: RO (occurrence: RO)
  Receive Date: 20250218
  Receipt Date: 20250507
  Transmission Date: 20250716
  Serious: No
  Sender: ALEXION PHARMACEUTICALS
  Company Number: RO-AstraZeneca-CH-00787536A

PATIENT
  Age: 72 Year
  Weight: 109 kg

DRUGS (4)
  1. DAPAGLIFLOZIN [Suspect]
     Active Substance: DAPAGLIFLOZIN
     Dosage: 10 MILLIGRAM, QD
  2. PERINDOPRIL [Concomitant]
     Active Substance: PERINDOPRIL
     Route: 065
  3. RILMENIDINE [Concomitant]
     Active Substance: RILMENIDINE
     Route: 065
  4. NITROXOLINE [Concomitant]
     Active Substance: NITROXOLINE
     Route: 065

REACTIONS (1)
  - Escherichia urinary tract infection [Not Recovered/Not Resolved]
